FAERS Safety Report 7599674-6 (Version None)
Quarter: 2011Q3

REPORT INFORMATION
  Report Type: 
  Country: None (occurrence: None)
  Receive Date: 20110711
  Receipt Date: 20110628
  Transmission Date: 20111222
  Serious: No
  Sender: FDA-Public Use
  Company Number: CA-ELI_LILLY_AND_COMPANY-CA201106008079

PATIENT
  Sex: Female

DRUGS (14)
  1. SEROQUEL [Concomitant]
  2. PAROXETINE HCL [Concomitant]
  3. DIFENAC                            /00372302/ [Concomitant]
  4. CITALOPRAM [Concomitant]
  5. MEDRONE [Concomitant]
  6. ZYPREXA ZYDIS [Suspect]
     Dosage: 15 MG, QD
  7. ZOPICLONE [Concomitant]
  8. ZYPREXA [Suspect]
     Dosage: 15 MG, QD
  9. ZYPREXA [Suspect]
     Dosage: 25 MG, QD
  10. CYCLOBENAZPRINE [Concomitant]
  11. ZYPREXA [Suspect]
     Dosage: 10 MG, QD
  12. ZYPREXA [Suspect]
     Dosage: 20 MG, QD
  13. ZIPRASIDONE HYDROCHLORIDE [Concomitant]
  14. ZYPREXA [Suspect]
     Dosage: 5 MG, QD

REACTIONS (6)
  - ANAEMIA [None]
  - WEIGHT INCREASED [None]
  - IMPAIRED FASTING GLUCOSE [None]
  - BLOOD TRIGLYCERIDES INCREASED [None]
  - DIABETES MELLITUS [None]
  - OVERDOSE [None]
